FAERS Safety Report 25508860 (Version 2)
Quarter: 2025Q3

REPORT INFORMATION
  Report Type: Report from Study
  Country: US (occurrence: US)
  Receive Date: 20250703
  Receipt Date: 20250923
  Transmission Date: 20251021
  Serious: Yes (Hospitalization, Other)
  Sender: SUNOVION
  Company Number: US-SMPA-2025SPA008158

PATIENT
  Age: 78 Year
  Sex: Male

DRUGS (3)
  1. ORGOVYX [Suspect]
     Active Substance: RELUGOLIX
     Indication: Prostate cancer
     Route: 048
  2. ORGOVYX [Suspect]
     Active Substance: RELUGOLIX
     Route: 048
  3. NUBEQA [Concomitant]
     Active Substance: DAROLUTAMIDE

REACTIONS (3)
  - Coronary arterial stent insertion [Unknown]
  - Pancreatic carcinoma [Unknown]
  - Arthralgia [Unknown]
